FAERS Safety Report 15005777 (Version 4)
Quarter: 2018Q4

REPORT INFORMATION
  Report Type: Report from Study
  Country: DE (occurrence: DE)
  Receive Date: 20180613
  Receipt Date: 20181119
  Transmission Date: 20190204
  Serious: Yes (Other)
  Sender: FDA-Public Use
  Company Number: PHHY2017DE020716

PATIENT
  Age: 41 Year
  Sex: Female

DRUGS (1)
  1. GILENYA [Suspect]
     Active Substance: FINGOLIMOD HYDROCHLORIDE
     Indication: MULTIPLE SCLEROSIS
     Dosage: UNK, QD
     Route: 048
     Dates: start: 20141202

REACTIONS (9)
  - Blood creatinine increased [Unknown]
  - Low density lipoprotein increased [Unknown]
  - Basophil count decreased [Unknown]
  - Monocyte count increased [Unknown]
  - White blood cell count decreased [Unknown]
  - Blood cholesterol increased [Unknown]
  - Paraesthesia [Unknown]
  - Lymphocyte count increased [Recovered/Resolved]
  - Neutrophil count decreased [Unknown]

NARRATIVE: CASE EVENT DATE: 20160705
